FAERS Safety Report 13586341 (Version 1)
Quarter: 2017Q2

REPORT INFORMATION
  Report Type: Spontaneous
  Country: US (occurrence: US)
  Receive Date: 20170526
  Receipt Date: 20170526
  Transmission Date: 20170830
  Serious: Yes (Other)
  Sender: FDA-Public Use
  Company Number: US-ELI_LILLY_AND_COMPANY-US201705007778

PATIENT
  Age: 58 Year
  Sex: Male

DRUGS (2)
  1. CIALIS [Suspect]
     Active Substance: TADALAFIL
     Indication: BLADDER DISORDER
     Dosage: 5 MG, UNKNOWN
     Route: 048
     Dates: start: 2012
  2. DYAZIDE [Concomitant]
     Active Substance: HYDROCHLOROTHIAZIDE\TRIAMTERENE
     Indication: MENIERE^S DISEASE
     Dosage: UNK, UNKNOWN
     Route: 065

REACTIONS (1)
  - Limb injury [Not Recovered/Not Resolved]
